FAERS Safety Report 5587637-1 (Version None)
Quarter: 2008Q1

REPORT INFORMATION
  Report Type: 
  Country: None (occurrence: None)
  Receive Date: 20080108
  Receipt Date: 20071224
  Transmission Date: 20080703
  Serious: Yes (Death, Hospitalization)
  Sender: FDA-Public Use
  Company Number: 2007BI026963

PATIENT
  Age: 73 Year
  Sex: Male
  Weight: 86.8 kg

DRUGS (19)
  1. ZEVALIN [Suspect]
     Indication: MULTIPLE MYELOMA
     Dosage: IV
     Route: 042
  2. OXYCODONE [Concomitant]
  3. COMPAZINE [Concomitant]
  4. ZANTAC [Concomitant]
  5. VITAMIN E [Concomitant]
  6. MULTI-VITAMIN [Concomitant]
  7. VITAMIN D3 [Concomitant]
  8. ZINC [Concomitant]
  9. PILOCARPINE [Concomitant]
  10. MEGACE [Concomitant]
  11. LOPRESSOR [Concomitant]
  12. VORICONAZOLE [Concomitant]
  13. CEFEPIME [Concomitant]
  14. VANCOMYCIN [Concomitant]
  15. VALGANDICLOVIR [Concomitant]
  16. DOXYCYCLINE [Concomitant]
  17. ZOMETA [Concomitant]
  18. VELCADE [Concomitant]
  19. DOXIL [Concomitant]

REACTIONS (25)
  - ACUTE HEPATIC FAILURE [None]
  - ASCITES [None]
  - ASTHENIA [None]
  - ATELECTASIS [None]
  - BLOOD IMMUNOGLOBULIN A DECREASED [None]
  - CHOLECYSTITIS [None]
  - COLITIS [None]
  - DRUG TOXICITY [None]
  - FALL [None]
  - FEBRILE NEUTROPENIA [None]
  - GALLBLADDER POLYP [None]
  - GRANULOMA [None]
  - HAEMOSIDEROSIS [None]
  - HEPATIC ENCEPHALOPATHY [None]
  - HEPATIC NECROSIS [None]
  - HEPATIC STEATOSIS [None]
  - HIATUS HERNIA [None]
  - LUNG INFILTRATION [None]
  - ORTHOSTATIC HYPOTENSION [None]
  - PANCYTOPENIA [None]
  - PLEURAL EFFUSION [None]
  - PULMONARY GRANULOMA [None]
  - SPINAL OSTEOARTHRITIS [None]
  - SPLEEN DISORDER [None]
  - VOMITING [None]
